FAERS Safety Report 7940955-1 (Version None)
Quarter: 2011Q4

REPORT INFORMATION
  Report Type: 
  Country: None (occurrence: None)
  Receive Date: 20111122
  Receipt Date: 20111107
  Transmission Date: 20120403
  Serious: Yes (Life-Threatening, Hospitalization, Other)
  Sender: FDA-Public Use
  Company Number: 2011P1010224

PATIENT
  Age: 34 Year
  Sex: Female
  Weight: 56 kg

DRUGS (3)
  1. VITAMIN SUPPLEMENTATION [Concomitant]
  2. CEFTRIAXONE [Suspect]
     Indication: TRACHEOBRONCHITIS
     Dosage: 2 GM, QD, IM
     Route: 030
  3. CEFTRIAXONE [Suspect]
     Indication: PYELONEPHRITIS
     Dosage: 2 GM, QD, IM
     Route: 030

REACTIONS (31)
  - LOCALISED INTRAABDOMINAL FLUID COLLECTION [None]
  - ELECTROCARDIOGRAM ST-T CHANGE [None]
  - PULMONARY CONGESTION [None]
  - CONVULSION [None]
  - SHOCK [None]
  - BRONCHOPULMONARY ASPERGILLOSIS [None]
  - MATERNAL EXPOSURE DURING PREGNANCY [None]
  - PYREXIA [None]
  - RESPIRATORY DISTRESS [None]
  - HEART RATE INCREASED [None]
  - CARDIAC MURMUR [None]
  - LEUKOCYTOSIS [None]
  - AORTIC VALVE INCOMPETENCE [None]
  - LEUKOPENIA [None]
  - GENERAL PHYSICAL HEALTH DETERIORATION [None]
  - DEPRESSED LEVEL OF CONSCIOUSNESS [None]
  - PLEURAL FIBROSIS [None]
  - AGRANULOCYTOSIS [None]
  - METABOLIC ACIDOSIS [None]
  - RENAL FAILURE ACUTE [None]
  - OLIGOHYDRAMNIOS [None]
  - ECG P WAVE INVERTED [None]
  - CAESAREAN SECTION [None]
  - INTESTINAL DILATATION [None]
  - TRACHEOBRONCHITIS [None]
  - ORAL CANDIDIASIS [None]
  - OLIGURIA [None]
  - CARDIOMEGALY [None]
  - TRICUSPID VALVE INCOMPETENCE [None]
  - AGITATION [None]
  - CARDIAC ARREST [None]
